FAERS Safety Report 8429692-7 (Version None)
Quarter: 2012Q2

REPORT INFORMATION
  Report Type: 
  Country: None (occurrence: None)
  Receive Date: 20120604
  Receipt Date: 20120521
  Transmission Date: 20120825
  Serious: Yes (Disabling, Other)
  Sender: FDA-Public Use
  Company Number: 2011MA003445

PATIENT
  Sex: Male

DRUGS (2)
  1. METOCLOPRAMIDE [Suspect]
     Indication: ABDOMINAL DISTENSION
     Dates: start: 20070401, end: 20090801
  2. METOCLOPRAMIDE [Suspect]
     Indication: DYSPEPSIA
     Dates: start: 20070401, end: 20090801

REACTIONS (8)
  - ECONOMIC PROBLEM [None]
  - DYSKINESIA [None]
  - PAIN [None]
  - EMOTIONAL DISORDER [None]
  - NERVOUS SYSTEM DISORDER [None]
  - TARDIVE DYSKINESIA [None]
  - EXTRAPYRAMIDAL DISORDER [None]
  - TREMOR [None]
